FAERS Safety Report 5243522-6 (Version None)
Quarter: 2007Q1

REPORT INFORMATION
  Report Type: 
  Country: None (occurrence: None)
  Receive Date: 20070222
  Receipt Date: 20070212
  Transmission Date: 20070707
  Serious: Yes (Other)
  Sender: FDA-Public Use
  Company Number: PHBS2007CN01684

PATIENT

DRUGS (3)
  1. CHLORZOXAZONE [Concomitant]
     Dates: start: 20070116
  2. GUTAI [Concomitant]
     Dates: start: 20070116
  3. VOLTAREN [Suspect]
     Dosage: 75 MG/DAY
     Route: 048
     Dates: start: 20070116, end: 20070118

REACTIONS (7)
  - ABDOMINAL PAIN [None]
  - ALBUMIN URINE PRESENT [None]
  - BETA 2 MICROGLOBULIN INCREASED [None]
  - BLOOD LACTATE DEHYDROGENASE INCREASED [None]
  - DYSURIA [None]
  - RED BLOOD CELL SEDIMENTATION RATE INCREASED [None]
  - RENAL IMPAIRMENT [None]
